FAERS Safety Report 4409904-7 (Version None)
Quarter: 2004Q3

REPORT INFORMATION
  Report Type: 
  Country: None (occurrence: None)
  Receive Date: 20040728
  Receipt Date: 20040607
  Transmission Date: 20050211
  Serious: Yes (Other)
  Sender: FDA-Public Use
  Company Number: PHEH2004US06233

PATIENT
  Age: 60 Year
  Sex: Female

DRUGS (1)
  1. ESTRADERM [Suspect]
     Dosage: .05 MG, UNK
     Route: 062
     Dates: start: 19900101

REACTIONS (7)
  - APPLICATION SITE ERYTHEMA [None]
  - APPLICATION SITE IRRITATION [None]
  - APPLICATION SITE PRURITUS [None]
  - APPLICATION SITE SCAR [None]
  - APPLICATION SITE WARMTH [None]
  - EAR OPERATION [None]
  - MIDDLE EAR DISORDER [None]
